FAERS Safety Report 6819588-6 (Version None)
Quarter: 2010Q3

REPORT INFORMATION
  Report Type: 
  Country: None (occurrence: None)
  Receive Date: 20100701
  Receipt Date: 20090917
  Transmission Date: 20110219
  Serious: Yes (Other)
  Sender: FDA-Public Use
  Company Number: US-TEVA-209621USA

PATIENT
  Sex: Male

DRUGS (3)
  1. AZILECT [Suspect]
     Indication: PARKINSON'S DISEASE
     Route: 048
     Dates: start: 20090913, end: 20090916
  2. RIVASTIGMINE [Concomitant]
     Route: 062
  3. SINEMET [Concomitant]

REACTIONS (2)
  - LIMB DISCOMFORT [None]
  - MUSCULAR WEAKNESS [None]
